FAERS Safety Report 8565576 (Version 2)
Quarter: 2014Q2

REPORT INFORMATION
  Report Type: Spontaneous
  Country: US (occurrence: US)
  Receive Date: 20120516
  Receipt Date: 20140617
  Transmission Date: 20141212
  Serious: Yes (Death, Hospitalization)
  Sender: FDA-Public Use
  Company Number: US-GLAXOSMITHKLINE-A0897726A

PATIENT
  Age: 66 Year
  Sex: Female
  Weight: 181.8 kg

DRUGS (1)
  1. AVANDIA [Suspect]
     Indication: DIABETES MELLITUS
     Dosage: 8MG PER DAY
     Route: 048
     Dates: start: 200109, end: 201002

REACTIONS (4)
  - Acute myocardial infarction [Fatal]
  - Cardiac arrest [Unknown]
  - Angina unstable [Unknown]
  - Coronary artery disease [Unknown]
